FAERS Safety Report 8774732 (Version 1)
Quarter: 2012Q4

REPORT INFORMATION
  Report Type: 
  Country: US (occurrence: US)
  Receive Date: 20120910
  Receipt Date: 20120910
  Transmission Date: 20130627
  Serious: Yes (Other)
  Sender: FDA-Public Use
  Company Number: US-SANOFI-AVENTIS-2012SA063684

PATIENT
  Age: 50 Year
  Sex: Male

DRUGS (4)
  1. LANTUS [Suspect]
     Indication: TYPE I DIABETES MELLITUS
     Dosage: Dose:60 unit(s)
     Route: 058
  2. LANTUS [Suspect]
     Indication: TYPE I DIABETES MELLITUS
     Dosage: Dose:60 unit(s)
     Route: 058
  3. OPTICLICK [Suspect]
     Indication: TYPE I DIABETES MELLITUS
     Dates: start: 2007
  4. HUMALOG [Concomitant]

REACTIONS (1)
  - Borderline glaucoma [Unknown]
